FAERS Safety Report 12411079 (Version 1)
Quarter: 2016Q2

REPORT INFORMATION
  Report Type: Spontaneous
  Country: US (occurrence: None)
  Receive Date: 20160526
  Receipt Date: 20160526
  Transmission Date: 20160815
  Serious: No
  Sender: FDA-Public Use
  Company Number: None

PATIENT
  Age: 58 Year
  Sex: Male
  Weight: 88.45 kg

DRUGS (1)
  1. VIMOVO [Suspect]
     Active Substance: ESOMEPRAZOLE MAGNESIUM\NAPROXEN
     Dosage: 2 PILLS TWICE MOUTH
     Route: 048
     Dates: start: 20160426, end: 20160504

REACTIONS (2)
  - Procedural site reaction [None]
  - Rash [None]

NARRATIVE: CASE EVENT DATE: 20160426
